FAERS Safety Report 8844454 (Version 1)
Quarter: 2012Q4

REPORT INFORMATION
  Report Type: Spontaneous
  Country: US (occurrence: None)
  Receive Date: 20121016
  Receipt Date: 20121016
  Transmission Date: 20130627
  Serious: Yes (Hospitalization)
  Sender: FDA-Public Use
  Company Number: None

PATIENT
  Age: 91 Year
  Sex: Male
  Weight: 61 kg

DRUGS (15)
  1. ACETYLSALICYLIC ACID [Suspect]
     Indication: CORONARY ARTERY DISEASE
     Route: 048
  2. ACETYLSALICYLIC ACID [Suspect]
     Indication: CORONARY ARTERY DISEASE
  3. COUMADIN [Suspect]
     Indication: CHRONIC ATRIAL FIBRILLATION
     Route: 048
  4. ATENOLOL [Concomitant]
  5. AVODART [Concomitant]
  6. LUTEIN [Concomitant]
  7. PRAVACHOL [Concomitant]
  8. MVI [Concomitant]
  9. VIT C [Concomitant]
  10. LOSARTAN [Concomitant]
  11. CA + VIT D [Concomitant]
  12. LEVOTHYROXINE [Concomitant]
  13. FLOMAX [Concomitant]
  14. REFRESH [Concomitant]
  15. IPRATROPIUM [Concomitant]

REACTIONS (4)
  - Metastatic pain [None]
  - International normalised ratio increased [None]
  - Hypophagia [None]
  - Renal failure acute [None]
